FAERS Safety Report 22125800 (Version 2)
Quarter: 2023Q2

REPORT INFORMATION
  Report Type: Report from Study
  Country: US (occurrence: US)
  Receive Date: 20230322
  Receipt Date: 20230525
  Transmission Date: 20230722
  Serious: Yes (Hospitalization)
  Sender: FDA-Public Use
  Company Number: US-BIOVITRUM-2022US12760

PATIENT
  Age: 10 Year
  Sex: Female

DRUGS (3)
  1. KINERET [Suspect]
     Active Substance: ANAKINRA
     Indication: Haemophagocytic lymphohistiocytosis
     Dosage: ONCE DAILY
     Route: 058
     Dates: start: 20210928
  2. KINERET [Suspect]
     Active Substance: ANAKINRA
     Indication: Still^s disease
     Dosage: TWICE A DAY
     Route: 058
     Dates: start: 20210928
  3. KINERET [Suspect]
     Active Substance: ANAKINRA
     Dosage: TWICE A DAY
     Route: 058
     Dates: start: 202109

REACTIONS (13)
  - Illness [Unknown]
  - Intentional product misuse [Not Recovered/Not Resolved]
  - Serum ferritin increased [Unknown]
  - Blood lactate dehydrogenase increased [Unknown]
  - Laboratory test abnormal [Unknown]
  - Crying [Unknown]
  - Injection site pain [Unknown]
  - Frequent bowel movements [Unknown]
  - White blood cell count decreased [Unknown]
  - Platelet count decreased [Unknown]
  - Pyrexia [Recovered/Resolved]
  - Haemophagocytic lymphohistiocytosis [Unknown]
  - Condition aggravated [Unknown]

NARRATIVE: CASE EVENT DATE: 20210928
